FAERS Safety Report 20126889 (Version 1)
Quarter: 2021Q4

REPORT INFORMATION
  Report Type: Spontaneous
  Country: GB (occurrence: GB)
  Receive Date: 20211129
  Receipt Date: 20211129
  Transmission Date: 20220303
  Serious: Yes (Other)
  Sender: FDA-Public Use
  Company Number: None

PATIENT
  Sex: Female
  Weight: 59.41 kg

DRUGS (2)
  1. BOTULINUM TOXIN TYPE A [Suspect]
     Active Substance: BOTULINUM TOXIN TYPE A
     Indication: Migraine with aura
     Dosage: 31 INJECTIONS
     Route: 051
     Dates: start: 20210907, end: 20210907
  2. FROVATRIPTAN [Concomitant]
     Active Substance: FROVATRIPTAN
     Indication: Ill-defined disorder

REACTIONS (9)
  - Headache [Recovering/Resolving]
  - Swollen tongue [Recovered/Resolved]
  - Eye pruritus [Recovering/Resolving]
  - Ear pruritus [Recovering/Resolving]
  - Tension headache [Recovering/Resolving]
  - Asthma [Recovering/Resolving]
  - Brow ptosis [Recovered/Resolved]
  - Neck pain [Recovered/Resolved with Sequelae]
  - Pruritus [Recovering/Resolving]

NARRATIVE: CASE EVENT DATE: 20210907
